FAERS Safety Report 15120718 (Version 2)
Quarter: 2018Q4

REPORT INFORMATION
  Report Type: Report from Study
  Country: US (occurrence: US)
  Receive Date: 20180709
  Receipt Date: 20181114
  Transmission Date: 20190204
  Serious: Yes (Other)
  Sender: FDA-Public Use
  Company Number: US-SA-2018SA152374

PATIENT
  Age: 67 Year
  Sex: Male

DRUGS (1)
  1. INSULIN GLARGINE [Suspect]
     Active Substance: INSULIN GLARGINE
     Indication: DIABETES MELLITUS
     Dosage: 75 U, QD

REACTIONS (4)
  - Blood glucose increased [Unknown]
  - Knee operation [Unknown]
  - Disease progression [Unknown]
  - Product quality issue [Unknown]

NARRATIVE: CASE EVENT DATE: 20181030
